FAERS Safety Report 7399982-8 (Version None)
Quarter: 2011Q2

REPORT INFORMATION
  Report Type: 
  Country: None (occurrence: None)
  Receive Date: 20110407
  Receipt Date: 20110325
  Transmission Date: 20111010
  Serious: Yes (Other)
  Sender: FDA-Public Use
  Company Number: US-JNJFOC-20110312375

PATIENT
  Sex: Male
  Weight: 68.04 kg

DRUGS (1)
  1. CONCERTA [Suspect]
     Indication: ATTENTION DEFICIT/HYPERACTIVITY DISORDER
     Route: 048

REACTIONS (6)
  - EAR TUBE INSERTION [None]
  - MIDDLE EAR EFFUSION [None]
  - TRICHOTILLOMANIA [None]
  - FRUSTRATION [None]
  - TIC [None]
  - ANXIETY [None]
